FAERS Safety Report 9163042 (Version 3)
Quarter: 2013Q3

REPORT INFORMATION
  Report Type: Spontaneous
  Country: US (occurrence: US)
  Receive Date: 20130314
  Receipt Date: 20130924
  Transmission Date: 20140515
  Serious: No
  Sender: FDA-Public Use
  Company Number: US-009507513-1303USA006843

PATIENT
  Age: 62 Year
  Sex: Male
  Weight: 95.24 kg

DRUGS (1)
  1. CLARITIN [Suspect]
     Indication: SINUS DISORDER
     Dosage: 10 MG, QD
     Route: 048
     Dates: start: 20130227, end: 20130301

REACTIONS (2)
  - Condition aggravated [Recovered/Resolved]
  - Drug ineffective [Unknown]
